FAERS Safety Report 7745675-4 (Version None)
Quarter: 2011Q3

REPORT INFORMATION
  Report Type: 
  Country: None (occurrence: None)
  Receive Date: 20110913
  Receipt Date: 20110804
  Transmission Date: 20111222
  Serious: No
  Sender: FDA-Public Use
  Company Number: US-BAYER-2011-069605

PATIENT
  Age: 40 Year
  Sex: Female

DRUGS (2)
  1. MIRENA [Suspect]
     Dosage: 20 ?G/D, CONT
     Route: 015
     Dates: start: 20110803, end: 20110803
  2. MARCAINE [Concomitant]
     Dosage: UNK
     Dates: start: 20110803

REACTIONS (3)
  - PROCEDURAL NAUSEA [None]
  - PROCEDURAL PAIN [None]
  - HEART RATE DECREASED [None]
